FAERS Safety Report 23473527 (Version 1)
Quarter: 2024Q1

REPORT INFORMATION
  Report Type: Other
  Country: GB (occurrence: GB)
  Receive Date: 20240203
  Receipt Date: 20240203
  Transmission Date: 20240409
  Serious: Yes (Life-Threatening, Other)
  Sender: FDA-Public Use
  Company Number: GB-MHRA-ADR 20516225

PATIENT
  Age: 85 Year
  Sex: Female

DRUGS (2)
  1. AMOXICILLIN\CLAVULANIC ACID [Suspect]
     Active Substance: AMOXICILLIN\CLAVULANIC ACID
     Indication: Lower respiratory tract infection
     Dosage: UNK,THREE TIMES A DAY,625 MG
     Route: 065
     Dates: start: 20091016, end: 20091023
  2. WARFARIN [Suspect]
     Active Substance: WARFARIN
     Indication: Atrial fibrillation
     Dosage: UNK,ONCE IN A DAY,3 MG
     Route: 048

REACTIONS (6)
  - Cerebral haemorrhage [Not Recovered/Not Resolved]
  - Dilatation ventricular [Unknown]
  - International normalised ratio increased [Unknown]
  - Brain oedema [Unknown]
  - Hemiparesis [Unknown]
  - Aphasia [Unknown]

NARRATIVE: CASE EVENT DATE: 20091026
